FAERS Safety Report 8812564 (Version 2)
Quarter: 2012Q4

REPORT INFORMATION
  Report Type: 
  Country: JM (occurrence: JM)
  Receive Date: 20120927
  Receipt Date: 20121004
  Transmission Date: 20130627
  Serious: Yes (Death, Other)
  Sender: FDA-Public Use
  Company Number: PHHO2005JM09982

PATIENT
  Sex: Female
  Weight: 81 kg

DRUGS (2)
  1. GLIVEC [Suspect]
     Indication: CHRONIC MYELOID LEUKAEMIA
     Dates: start: 20040928
  2. GLIVEC [Suspect]
     Dosage: 400 mg, QD
     Route: 048
     Dates: start: 200410

REACTIONS (4)
  - Death [Fatal]
  - Hepatic cancer [Unknown]
  - Liver function test abnormal [Unknown]
  - Hepatomegaly [Unknown]
